FAERS Safety Report 18408664 (Version 1)
Quarter: 2020Q4

REPORT INFORMATION
  Report Type: Spontaneous
  Country: US (occurrence: US)
  Receive Date: 20201020
  Receipt Date: 20201020
  Transmission Date: 20210114
  Serious: Yes (Other)
  Sender: FDA-Public Use
  Company Number: US-SUNOVION-2020SUN003057

PATIENT
  Sex: Male

DRUGS (1)
  1. LATUDA [Suspect]
     Active Substance: LURASIDONE HYDROCHLORIDE
     Indication: BIPOLAR DISORDER
     Dosage: 40 MG, QD
     Route: 048

REACTIONS (18)
  - Aphasia [Unknown]
  - Impatience [Unknown]
  - Irritability [Unknown]
  - Tongue paralysis [Unknown]
  - Eyelid disorder [Unknown]
  - Abnormal behaviour [Unknown]
  - Anger [Unknown]
  - Asthenia [Unknown]
  - Throat tightness [Unknown]
  - Dyskinesia [Unknown]
  - Muscle spasms [Unknown]
  - Throat irritation [Unknown]
  - Somnolence [Unknown]
  - Dysphonia [Unknown]
  - Alcohol abuse [Unknown]
  - Drug ineffective [Unknown]
  - Muscle twitching [Unknown]
  - Anxiety [Unknown]
